FAERS Safety Report 10266602 (Version 1)
Quarter: 2014Q2

REPORT INFORMATION
  Report Type: Spontaneous
  Country: AU (occurrence: None)
  Receive Date: 20140625
  Receipt Date: 20140625
  Transmission Date: 20141212
  Serious: No
  Sender: FDA-Public Use
  Company Number: None

PATIENT
  Age: 66 Year
  Sex: Female
  Weight: 55 kg

DRUGS (10)
  1. PREGABALIN [Suspect]
     Indication: NEURALGIA
     Route: 048
  2. PREGABALIN [Suspect]
     Indication: SPINAL OSTEOARTHRITIS
     Route: 048
  3. PREGABALIN [Suspect]
     Indication: VERTEBRAL OSTEOPHYTE
     Route: 048
  4. LYRICA [Concomitant]
  5. TRAMADOL [Concomitant]
  6. ENDONE [Concomitant]
  7. VIT C [Concomitant]
  8. MULTI VIT [Concomitant]
  9. OMEGA 3 [Concomitant]
  10. ASPIRIN [Concomitant]

REACTIONS (6)
  - Spinal osteoarthritis [None]
  - Gallbladder pain [None]
  - Lymphadenopathy [None]
  - Confusional state [None]
  - Dyslexia [None]
  - Eye disorder [None]
